FAERS Safety Report 5099648-3 (Version None)
Quarter: 2006Q3

REPORT INFORMATION
  Report Type: 
  Country: None (occurrence: None)
  Receive Date: 20060906
  Receipt Date: 20060823
  Transmission Date: 20061208
  Serious: Yes (Hospitalization, Other)
  Sender: FDA-Public Use
  Company Number: 2005BI007421

PATIENT
  Age: 57 Year
  Sex: Female
  Weight: 87.9978 kg

DRUGS (17)
  1. AVONEX [Suspect]
     Indication: MULTIPLE SCLEROSIS
     Dosage: 30 UG;QW;IM
     Route: 030
     Dates: start: 20030807
  2. PRAVACHOL [Concomitant]
  3. PENTOXIFYLLINE [Concomitant]
  4. OXYBUTYNIN [Concomitant]
  5. IMIPRAMINE [Concomitant]
  6. PREVACID [Concomitant]
  7. POTASSIUM CHLORIDE [Concomitant]
  8. PROCHLORPERAZINE [Concomitant]
  9. SPIRONOLACTONE [Concomitant]
  10. ZAROXOLYN [Concomitant]
  11. FORTAZ [Concomitant]
  12. VANCOMYCIN [Concomitant]
  13. ACTOS [Concomitant]
  14. ALPHAGAN [Concomitant]
  15. CLONIDINE [Concomitant]
  16. GLYBURIDE [Concomitant]
  17. LOTREL [Concomitant]

REACTIONS (16)
  - ANAEMIA [None]
  - ARTHROPOD BITE [None]
  - BLOOD CREATININE INCREASED [None]
  - BONE MARROW FAILURE [None]
  - BREAST CANCER METASTATIC [None]
  - BREAST HYPERPLASIA [None]
  - CONDITION AGGRAVATED [None]
  - EXCORIATION [None]
  - INFECTION [None]
  - METASTASES TO LYMPH NODES [None]
  - MULTIPLE SCLEROSIS [None]
  - MUSCULAR WEAKNESS [None]
  - PERFORMANCE STATUS DECREASED [None]
  - SURGERY [None]
  - THROMBOCYTHAEMIA [None]
  - WEIGHT DECREASED [None]
